FAERS Safety Report 7703225-2 (Version None)
Quarter: 2011Q3

REPORT INFORMATION
  Report Type: 
  Country: None (occurrence: None)
  Receive Date: 20110823
  Receipt Date: 20110809
  Transmission Date: 20111222
  Serious: No
  Sender: FDA-Public Use
  Company Number: US-B.I. PHARMACEUTICALS,INC./RIDGEFIELD-2011-BP-19479BP

PATIENT
  Sex: Male

DRUGS (9)
  1. PRADAXA [Suspect]
     Indication: ATRIAL FIBRILLATION
     Dosage: 300 MG
     Route: 048
     Dates: start: 20110807
  2. AVODART [Concomitant]
     Indication: PROSTATOMEGALY
  3. METFORMIN HCL [Concomitant]
     Indication: DIABETES MELLITUS
  4. LISINOPRIL [Concomitant]
     Indication: HYPERTENSION
  5. LIPITOR [Concomitant]
     Indication: BLOOD CHOLESTEROL INCREASED
  6. KLOR-CON [Concomitant]
     Indication: ELECTROLYTE SUBSTITUTION THERAPY
  7. NORVASC [Concomitant]
     Indication: HYPERTENSION
  8. GLYBURIDE [Concomitant]
     Indication: DIABETES MELLITUS
  9. ALLOPURINOL [Concomitant]
     Indication: GOUT

REACTIONS (4)
  - FATIGUE [None]
  - DYSPEPSIA [None]
  - ERUCTATION [None]
  - POLLAKIURIA [None]
